FAERS Safety Report 13097336 (Version 1)
Quarter: 2017Q1

REPORT INFORMATION
  Report Type: Spontaneous
  Country: US (occurrence: US)
  Receive Date: 20170106
  Receipt Date: 20170106
  Transmission Date: 20170428
  Serious: Yes (Life-Threatening, Hospitalization)
  Sender: FDA-Public Use
  Company Number: None

PATIENT
  Age: 59 Year
  Sex: Male
  Weight: 91.9 kg

DRUGS (1)
  1. CARFILZOMIB [Suspect]
     Active Substance: CARFILZOMIB
     Indication: PLASMA CELL MYELOMA
     Route: 042
     Dates: start: 20161228, end: 20161228

REACTIONS (15)
  - Nausea [None]
  - Acute kidney injury [None]
  - Haemolytic uraemic syndrome [None]
  - Influenza A virus test positive [None]
  - Thrombocytopenia [None]
  - Microangiopathic haemolytic anaemia [None]
  - Wheezing [None]
  - Vomiting [None]
  - Pyrexia [None]
  - Dizziness [None]
  - Cough [None]
  - Renal failure [None]
  - Schistocytosis [None]
  - International normalised ratio abnormal [None]
  - Hypertension [None]

NARRATIVE: CASE EVENT DATE: 20161229
